FAERS Safety Report 6292196-4 (Version None)
Quarter: 2009Q3

REPORT INFORMATION
  Report Type: 
  Country: None (occurrence: None)
  Receive Date: 20090731
  Receipt Date: 20090724
  Transmission Date: 20100115
  Serious: Yes (Other)
  Sender: FDA-Public Use
  Company Number: US-KINGPHARMUSA00001-K200900818

PATIENT
  Age: 45 Year
  Sex: Female

DRUGS (1)
  1. THROMBIN NOS [Suspect]
     Indication: OPERATIVE HAEMORRHAGE
     Dosage: UNK

REACTIONS (2)
  - ADVERSE REACTION [None]
  - HAEMORRHAGE [None]
